FAERS Safety Report 25776619 (Version 1)
Quarter: 2025Q3

REPORT INFORMATION
  Report Type: Spontaneous
  Country: US (occurrence: US)
  Receive Date: 20250909
  Receipt Date: 20250909
  Transmission Date: 20251021
  Serious: No
  Sender: DOMPE FARMACEUTICI
  Company Number: US-FARMAPROD-202503-0816

PATIENT
  Age: 65 Year
  Sex: Male

DRUGS (7)
  1. OXERVATE [Suspect]
     Active Substance: CENEGERMIN-BKBJ
     Indication: Hypoaesthesia eye
     Route: 047
     Dates: start: 20250213
  2. JANUVIA [Concomitant]
     Active Substance: SITAGLIPTIN PHOSPHATE
  3. LISINOPRIL [Concomitant]
     Active Substance: LISINOPRIL
  4. CYMBALTA [Concomitant]
     Active Substance: DULOXETINE HYDROCHLORIDE
  5. DUREZOL [Concomitant]
     Active Substance: DIFLUPREDNATE
  6. ATROPINE SULFATE [Concomitant]
     Active Substance: ATROPINE SULFATE
  7. MOXIFLOXACIN [Concomitant]
     Active Substance: MOXIFLOXACIN

REACTIONS (8)
  - Fall [Unknown]
  - Head injury [Unknown]
  - Product dose omission issue [Unknown]
  - Dizziness [Unknown]
  - Blood pressure fluctuation [Unknown]
  - Decreased appetite [Unknown]
  - Weight decreased [Unknown]
  - Product administration error [Unknown]

NARRATIVE: CASE EVENT DATE: 20250311
